FAERS Safety Report 7804501-5 (Version None)
Quarter: 2011Q4

REPORT INFORMATION
  Report Type: 
  Country: None (occurrence: None)
  Receive Date: 20111010
  Receipt Date: 20110929
  Transmission Date: 20120403
  Serious: Yes (Other)
  Sender: FDA-Public Use
  Company Number: PHEH2011US05427

PATIENT

DRUGS (2)
  1. DIOVAN [Suspect]
  2. TEKTURNA [Suspect]

REACTIONS (1)
  - BACK PAIN [None]
